FAERS Safety Report 9514840 (Version 1)
Quarter: 2013Q3

REPORT INFORMATION
  Report Type: Spontaneous
  Country: US (occurrence: US)
  Receive Date: 20130911
  Receipt Date: 20130911
  Transmission Date: 20140515
  Serious: No
  Sender: FDA-Public Use
  Company Number: US-009507513-1309USA001938

PATIENT
  Age: 62 Year
  Sex: Male

DRUGS (4)
  1. JANUMET XR [Suspect]
     Indication: DIABETES MELLITUS
     Dosage: 50MG/1000MG, 2 TABLETS BY MOUTH DAILY WITH DINNER
     Route: 048
     Dates: start: 201307
  2. AMARYL [Concomitant]
  3. FLEXERIL [Concomitant]
  4. NORCO [Concomitant]

REACTIONS (2)
  - Diarrhoea [Not Recovered/Not Resolved]
  - Medication residue present [Unknown]
